FAERS Safety Report 26026566 (Version 1)
Quarter: 2025Q4

REPORT INFORMATION
  Report Type: Spontaneous
  Country: CA (occurrence: CA)
  Receive Date: 20251111
  Receipt Date: 20251111
  Transmission Date: 20260117
  Serious: Yes (Hospitalization, Other)
  Sender: BRISTOL-MYERS SQUIBB COMPANY
  Company Number: CA-BRISTOL-MYERS SQUIBB COMPANY-2025-152507

PATIENT
  Age: 59 Year
  Sex: Male
  Weight: 50 kg

DRUGS (11)
  1. ABRAXANE [Suspect]
     Active Substance: PACLITAXEL
     Indication: Oesophageal adenocarcinoma stage IV
     Dosage: DOSAGE FORM: POWDER FOR SUSPENSION INTRAVENOUS
     Route: 042
  2. ABRAXANE [Suspect]
     Active Substance: PACLITAXEL
     Indication: Metastatic neoplasm
  3. ABRAXANE [Suspect]
     Active Substance: PACLITAXEL
     Indication: Metastases to liver
  4. CYRAMZA [Concomitant]
     Active Substance: RAMUCIRUMAB
     Indication: Oesophageal adenocarcinoma stage IV
     Dosage: SINGLE USE VIALS, DOSAGE FORM: SOLUTION INTRAVENOUS
     Route: 042
  5. CYRAMZA [Concomitant]
     Active Substance: RAMUCIRUMAB
     Indication: Metastatic neoplasm
  6. CYRAMZA [Concomitant]
     Active Substance: RAMUCIRUMAB
     Indication: Metastases to liver
  7. HYDROMORPHONE [Concomitant]
     Active Substance: HYDROMORPHONE
     Indication: Product used for unknown indication
  8. LOPERAMIDE [Concomitant]
     Active Substance: LOPERAMIDE
     Indication: Product used for unknown indication
  9. LORAZEPAM [Concomitant]
     Active Substance: LORAZEPAM
     Indication: Product used for unknown indication
  10. PANTOPRAZOLE [Concomitant]
     Active Substance: PANTOPRAZOLE
     Indication: Product used for unknown indication
     Dosage: DOSAGE FORM: POWDER FOR SOLUTION INTRAVENOUS
  11. SPIRONOLACTONE [Concomitant]
     Active Substance: SPIRONOLACTONE
     Indication: Product used for unknown indication

REACTIONS (4)
  - Peritonitis bacterial [Recovered/Resolved]
  - Pyrexia [Recovered/Resolved]
  - Hospitalisation [Unknown]
  - Off label use [Unknown]
